FAERS Safety Report 13610434 (Version 1)
Quarter: 2017Q2

REPORT INFORMATION
  Report Type: Spontaneous
  Country: US (occurrence: US)
  Receive Date: 20170602
  Receipt Date: 20170602
  Transmission Date: 20170830
  Serious: No
  Sender: FDA-Public Use
  Company Number: None

PATIENT
  Age: 72 Year
  Sex: Female

DRUGS (1)
  1. CAPECITABINE 500MG ACCORD [Suspect]
     Active Substance: CAPECITABINE
     Indication: CHOLANGIOCARCINOMA
     Dosage: 1500MG IN THE AM/2000MG IN THE DAILY 14 DAYS ON 7 DAYS OFF BY MOUTH
     Route: 048
     Dates: start: 20170517

REACTIONS (3)
  - Hypoaesthesia [None]
  - Dyschromatopsia [None]
  - Skin discolouration [None]

NARRATIVE: CASE EVENT DATE: 20170601
